FAERS Safety Report 22918235 (Version 7)
Quarter: 2025Q1

REPORT INFORMATION
  Report Type: Other
  Country: US (occurrence: US)
  Receive Date: 20230907
  Receipt Date: 20250221
  Transmission Date: 20250409
  Serious: Yes (Other)
  Sender: TRAVERE THERAPEUTICS
  Company Number: US-TRAVERE-2023TVT00230

PATIENT
  Age: 56 Year
  Sex: Female

DRUGS (3)
  1. FILSPARI [Suspect]
     Active Substance: SPARSENTAN
     Indication: IgA nephropathy
     Dosage: FILSPARI 200MG 1ST MONTHS SUPPLY FROM TC SCRIPT. PATIENT IS ON QUICK START.
     Route: 048
     Dates: start: 20200804
  2. TACROLIMUS [Concomitant]
     Active Substance: TACROLIMUS
  3. MYFORTIC [Concomitant]
     Active Substance: MYCOPHENOLATE SODIUM

REACTIONS (11)
  - Transplant rejection [Unknown]
  - Therapeutic response unexpected [Unknown]
  - Illness [Unknown]
  - COVID-19 [Unknown]
  - Nightmare [Recovering/Resolving]
  - Nausea [Recovering/Resolving]
  - Fatigue [Recovering/Resolving]
  - Muscular weakness [Recovering/Resolving]
  - Cough [Unknown]
  - Wheezing [Unknown]
  - Upper respiratory tract infection [Unknown]

NARRATIVE: CASE EVENT DATE: 20231101
